FAERS Safety Report 21756775 (Version 1)
Quarter: 2022Q4

REPORT INFORMATION
  Report Type: Spontaneous
  Country: CN (occurrence: None)
  Receive Date: 20221220
  Receipt Date: 20221220
  Transmission Date: 20230113
  Serious: Yes (Hospitalization)
  Sender: FDA-Public Use
  Company Number: 2022A394557

PATIENT
  Age: 60 Year
  Sex: Male
  Weight: 50 kg

DRUGS (4)
  1. IMFINZI [Suspect]
     Active Substance: DURVALUMAB
     Indication: Non-small cell lung cancer stage III
     Dosage: 500 MG/PERIOD
     Route: 042
     Dates: start: 20210606, end: 20210630
  2. IMFINZI [Suspect]
     Active Substance: DURVALUMAB
     Indication: Non-small cell lung cancer stage III
     Dosage: 500MG/10ML
     Route: 042
     Dates: start: 202105, end: 202203
  3. LENVATINIB [Concomitant]
     Active Substance: LENVATINIB
     Dates: start: 202105
  4. RIVOCERANIB MESYLATE [Concomitant]
     Active Substance: RIVOCERANIB MESYLATE
     Dates: start: 202204

REACTIONS (1)
  - Pulmonary tuberculosis [Recovered/Resolved]

NARRATIVE: CASE EVENT DATE: 20220501
